FAERS Safety Report 5379138-0 (Version None)
Quarter: 2007Q3

REPORT INFORMATION
  Report Type: 
  Country: None (occurrence: None)
  Receive Date: 20070705
  Receipt Date: 20070629
  Transmission Date: 20080115
  Serious: Yes (Other)
  Sender: FDA-Public Use
  Company Number: DE-BRISTOL-MYERS SQUIBB COMPANY-13765003

PATIENT
  Age: 68 Year
  Sex: Male

DRUGS (1)
  1. PRAVASTATIN SODIUM [Suspect]
     Indication: PROPHYLAXIS

REACTIONS (1)
  - COLITIS [None]
